FAERS Safety Report 12470216 (Version 1)
Quarter: 2016Q2

REPORT INFORMATION
  Report Type: Report from Study
  Country: FR (occurrence: FR)
  Receive Date: 20160616
  Receipt Date: 20160616
  Transmission Date: 20160815
  Serious: Yes (Hospitalization)
  Sender: FDA-Public Use
  Company Number: FR-ROCHE-1773109

PATIENT
  Sex: Female

DRUGS (7)
  1. RITUXIMAB [Suspect]
     Active Substance: RITUXIMAB
     Indication: SJOGREN^S SYNDROME
     Dosage: SECOND INFUSION, DAY 15
     Route: 042
     Dates: start: 20070208
  2. RITUXIMAB [Suspect]
     Active Substance: RITUXIMAB
     Dosage: INFUSION, DAY 15
     Route: 042
     Dates: start: 20080929
  3. RITUXIMAB [Suspect]
     Active Substance: RITUXIMAB
     Indication: RHEUMATOID ARTHRITIS
     Dosage: FIRST INFUSION, DAY 1
     Route: 042
     Dates: start: 20070125
  4. RITUXIMAB [Suspect]
     Active Substance: RITUXIMAB
     Dosage: DAY 1
     Route: 042
     Dates: start: 20080915
  5. RITUXIMAB [Suspect]
     Active Substance: RITUXIMAB
     Dosage: INFUSION, DAY 15
     Route: 042
     Dates: start: 20110124
  6. RITUXIMAB [Suspect]
     Active Substance: RITUXIMAB
     Dosage: INFUSION, DAY 1
     Route: 042
     Dates: start: 20110110
  7. METHOTREXATE [Concomitant]
     Active Substance: METHOTREXATE
     Route: 065

REACTIONS (10)
  - Chronic kidney disease [Not Recovered/Not Resolved]
  - Headache [Recovered/Resolved]
  - Pyrexia [Recovered/Resolved]
  - Hypoparathyroidism [Unknown]
  - Urinary tract infection [Recovered/Resolved]
  - Vertigo [Recovered/Resolved]
  - Pyelonephritis [Recovered/Resolved]
  - Renal colic [Recovered/Resolved]
  - Rash [Recovered/Resolved]
  - Asthenia [Recovered/Resolved]

NARRATIVE: CASE EVENT DATE: 20070209
